FAERS Safety Report 7640240-1 (Version None)
Quarter: 2011Q3

REPORT INFORMATION
  Report Type: 
  Country: None (occurrence: None)
  Receive Date: 20110728
  Receipt Date: 20110718
  Transmission Date: 20111222
  Serious: Yes (Hospitalization, Other)
  Sender: FDA-Public Use
  Company Number: US-BAYER-201030325NA

PATIENT
  Age: 29 Year
  Sex: Female
  Weight: 63.492 kg

DRUGS (15)
  1. YAZ [Suspect]
     Indication: PREMENSTRUAL SYNDROME
     Dosage: 1 DF, QD
     Route: 048
     Dates: start: 20070501, end: 20071001
  2. GEODON [Concomitant]
  3. WELLBUTRIN [Concomitant]
     Dosage: 300 MG, UNK
  4. SERTRALINE HYDROCHLORIDE [Concomitant]
     Dosage: 100 MG, UNK
  5. BUPROPION HYDROCHLORIDE [Concomitant]
     Dosage: 300 MG, UNK
  6. ADDERALL XR 10 [Concomitant]
     Dosage: 20 MG, UNK
     Route: 048
  7. LAMICTAL [Concomitant]
  8. PAXIL [Concomitant]
  9. AMBIEN [Concomitant]
     Dosage: 20 MG, HS
  10. FLUOXETINE [Concomitant]
     Dosage: 40 MG, UNK
     Route: 048
  11. FLUOXETINE [Concomitant]
     Dosage: 80 MG, UNK
  12. ZOLOFT [Concomitant]
     Dosage: UNK
     Dates: start: 20050201, end: 20050901
  13. LORAZEPAM [Concomitant]
     Indication: ANXIETY
     Dosage: 0.5 MG, BID
     Dates: start: 20050101, end: 20090101
  14. SERTRALINE HYDROCHLORIDE [Concomitant]
     Dosage: 50 MG, BID
  15. FLUOXETINE [Concomitant]
     Dosage: 60 MG, UNK

REACTIONS (9)
  - CHEST PAIN [None]
  - COSTOCHONDRITIS [None]
  - ANXIETY [None]
  - DYSPNOEA [None]
  - PULMONARY EMBOLISM [None]
  - MENTAL DISORDER [None]
  - PALPITATIONS [None]
  - DEPRESSION [None]
  - SINUS TACHYCARDIA [None]
